FAERS Safety Report 6427331-8 (Version None)
Quarter: 2009Q4

REPORT INFORMATION
  Report Type: 
  Country: None (occurrence: None)
  Receive Date: 20091104
  Receipt Date: 20091024
  Transmission Date: 20100525
  Serious: Yes (Hospitalization)
  Sender: FDA-Public Use
  Company Number: CA-ELI_LILLY_AND_COMPANY-CA200910006636

PATIENT
  Age: 75 Year
  Sex: Female

DRUGS (7)
  1. FORTEO [Suspect]
     Indication: OSTEOPOROSIS
     Dosage: 20 UG, DAILY (1/D)
     Route: 058
     Dates: start: 20081030
  2. TYLENOL (CAPLET) [Concomitant]
  3. GABAPENTIN [Concomitant]
  4. VITAMIN D [Concomitant]
  5. CALCIUM                                 /N/A/ [Concomitant]
  6. PANTOLOC /01263201/ [Concomitant]
  7. DILAUDID [Concomitant]
     Dosage: UNK, AS NEEDED

REACTIONS (2)
  - MOBILITY DECREASED [None]
  - UPPER LIMB FRACTURE [None]
